FAERS Safety Report 8390318 (Version 2)
Quarter: 2014Q2

REPORT INFORMATION
  Report Type: Spontaneous
  Country: US (occurrence: US)
  Receive Date: 20120203
  Receipt Date: 20140506
  Transmission Date: 20141212
  Serious: Yes (Other)
  Sender: FDA-Public Use
  Company Number: US-ROCHE-783893

PATIENT
  Age: 24 Year
  Sex: Female
  Weight: 44.49 kg

DRUGS (1)
  1. ACCUTANE [Suspect]
     Indication: ACNE
     Route: 065
     Dates: start: 199701, end: 199705

REACTIONS (9)
  - Crohn^s disease [Unknown]
  - Inflammatory bowel disease [Unknown]
  - Stress [Unknown]
  - Colitis ulcerative [Unknown]
  - Anal fissure [Unknown]
  - Perirectal abscess [Unknown]
  - Fistula [Unknown]
  - Depression [Unknown]
  - Dry skin [Unknown]
